FAERS Safety Report 6541017-0 (Version None)
Quarter: 2010Q1

REPORT INFORMATION
  Report Type: 
  Country: None (occurrence: None)
  Receive Date: 20100118
  Receipt Date: 20100111
  Transmission Date: 20100710
  Serious: Yes (Other)
  Sender: FDA-Public Use
  Company Number: US-BAYER-201010361BCC

PATIENT
  Age: 68 Year
  Sex: Female

DRUGS (2)
  1. ASPIRIN [Suspect]
     Indication: DRUG USE FOR UNKNOWN INDICATION
     Route: 048
  2. PLAVIX [Suspect]
     Indication: STENT PLACEMENT
     Dosage: DAILY
     Route: 048
     Dates: start: 20090501

REACTIONS (2)
  - CONTUSION [None]
  - EYE HAEMORRHAGE [None]
